FAERS Safety Report 10060625 (Version 2)
Quarter: 2014Q2

REPORT INFORMATION
  Report Type: Report from Study
  Country: US (occurrence: US)
  Receive Date: 20140404
  Receipt Date: 20140416
  Transmission Date: 20141212
  Serious: No
  Sender: FDA-Public Use
  Company Number: US-ACTELION-A-US2014-96898

PATIENT
  Age: 80 Year
  Sex: Male

DRUGS (2)
  1. MACITENTAN [Suspect]
     Indication: PULMONARY ARTERIAL HYPERTENSION
     Dosage: 10 MG, QD
     Route: 048
     Dates: start: 20140312
  2. WARFARIN [Concomitant]

REACTIONS (1)
  - Functional gastrointestinal disorder [Unknown]
